FAERS Safety Report 8786537 (Version 1)
Quarter: 2012Q4

REPORT INFORMATION
  Report Type: 
  Country: US (occurrence: US)
  Receive Date: 20120914
  Receipt Date: 20120914
  Transmission Date: 20130627
  Serious: Yes (Other)
  Sender: FDA-Public Use
  Company Number: US-CELGENEUS-163-21660-12090730

PATIENT

DRUGS (2)
  1. ABRAXANE [Suspect]
     Indication: METASTATIC BREAST CANCER
     Dosage: 150 milligram/sq. meter
     Route: 041
     Dates: start: 2011, end: 2011
  2. BEVACIZUMAB [Suspect]
     Indication: METASTATIC BREAST CANCER
     Route: 065

REACTIONS (2)
  - Haematotoxicity [Unknown]
  - Peripheral sensory neuropathy [Unknown]
